FAERS Safety Report 4358930-5 (Version None)
Quarter: 2004Q2

REPORT INFORMATION
  Report Type: 
  Country: None (occurrence: None)
  Receive Date: 20040512
  Receipt Date: 20040422
  Transmission Date: 20050107
  Serious: Yes (Death, Other)
  Sender: FDA-Public Use
  Company Number: US_0404102553

PATIENT
  Age: 24 Year
  Sex: Male

DRUGS (1)
  1. ZYPREXA [Suspect]
     Dates: start: 19970101, end: 20030101

REACTIONS (2)
  - DIABETIC KETOACIDOSIS [None]
  - PANCREATITIS ACUTE [None]
